FAERS Safety Report 13860828 (Version 3)
Quarter: 2017Q4

REPORT INFORMATION
  Report Type: Spontaneous
  Country: GB (occurrence: GB)
  Receive Date: 20170811
  Receipt Date: 20171005
  Transmission Date: 20180320
  Serious: Yes (Other)
  Sender: FDA-Public Use
  Company Number: GB-AMGEN-GBRSP2017122440

PATIENT
  Age: 58 Year
  Sex: Female

DRUGS (1)
  1. ENBREL [Suspect]
     Active Substance: ETANERCEPT
     Indication: PRODUCT USED FOR UNKNOWN INDICATION
     Dosage: 50 MG, UNK (ONCE A FORTNIGHT)
     Route: 065

REACTIONS (5)
  - Product use issue [Unknown]
  - Cholangitis [Unknown]
  - Hepatic cancer [Unknown]
  - Blood test abnormal [Unknown]
  - Gastrointestinal carcinoma [Unknown]
